FAERS Safety Report 17444448 (Version 2)
Quarter: 2020Q2

REPORT INFORMATION
  Report Type: Spontaneous
  Country: US (occurrence: US)
  Receive Date: 20200221
  Receipt Date: 20200526
  Transmission Date: 20200713
  Serious: Yes (Other)
  Sender: FDA-Public Use
  Company Number: US-UCBSA-2020007663

PATIENT

DRUGS (1)
  1. CERTOLIZUMAB PEGOL [Suspect]
     Active Substance: CERTOLIZUMAB PEGOL
     Indication: RHEUMATOID ARTHRITIS
     Dosage: UNKNOWN DOSE

REACTIONS (10)
  - Bacterial infection [Unknown]
  - Herpes zoster [Unknown]
  - Sepsis [Unknown]
  - Upper respiratory tract infection [Unknown]
  - Bacteraemia [Unknown]
  - Infection [Unknown]
  - Pyelonephritis [Unknown]
  - Urinary tract infection [Unknown]
  - Pneumonia [Unknown]
  - Skin infection [Unknown]
